FAERS Safety Report 6569960-7 (Version None)
Quarter: 2010Q1

REPORT INFORMATION
  Report Type: 
  Country: None (occurrence: None)
  Receive Date: 20100204
  Receipt Date: 20100125
  Transmission Date: 20100710
  Serious: Yes (Death, Hospitalization, Other)
  Sender: FDA-Public Use
  Company Number: BR-ABBOTT-09P-163-0574401-00

PATIENT
  Sex: Male
  Weight: 90.5 kg

DRUGS (4)
  1. KALETRA [Suspect]
     Indication: HIV INFECTION
     Route: 048
     Dates: start: 20080306, end: 20090328
  2. MARAVIROC [Suspect]
     Indication: HIV INFECTION
     Route: 048
     Dates: start: 20080306, end: 20090328
  3. ATAZANAVIR [Suspect]
     Indication: HIV INFECTION
     Route: 048
     Dates: start: 20080306, end: 20090328
  4. AMLODIPINE [Concomitant]
     Indication: HYPERTENSION
     Dates: start: 20070701

REACTIONS (4)
  - DYSPNOEA [None]
  - HODGKIN'S DISEASE [None]
  - PNEUMONIA [None]
  - SEPSIS [None]
